FAERS Safety Report 8006117-7 (Version None)
Quarter: 2011Q4

REPORT INFORMATION
  Report Type: 
  Country: None (occurrence: None)
  Receive Date: 20111226
  Receipt Date: 20111216
  Transmission Date: 20120403
  Serious: Yes (Hospitalization)
  Sender: FDA-Public Use
  Company Number: BE-PFIZER INC-2011308241

PATIENT
  Age: 55 Year
  Sex: Female
  Weight: 57.8 kg

DRUGS (14)
  1. EXEMESTANE [Suspect]
     Indication: BREAST CANCER
     Dosage: 25 MG, 1X/DAY
     Route: 048
     Dates: start: 20080829, end: 20090429
  2. OMEPRAZOLE [Concomitant]
     Indication: DYSPEPSIA
     Dosage: UNK
     Dates: start: 20090313
  3. EPIRUBICIN HYDROCHLORIDE [Suspect]
     Indication: BREAST CANCER
     Dosage: UNK
     Dates: start: 20090505
  4. FLUTICASONE PROPIONATE/SALMETEROL [Concomitant]
     Indication: HOUSE DUST ALLERGY
     Dosage: UNK
  5. CP-751,871 [Suspect]
     Indication: BREAST CANCER
     Dosage: 1390 MG, CYCLIC
     Route: 042
     Dates: start: 20090313, end: 20090424
  6. FLUTICASONE PROPIONATE/SALMETEROL [Concomitant]
     Indication: ASTHMA
  7. ZOMETA [Concomitant]
     Indication: PROPHYLAXIS
     Dosage: UNK
     Dates: start: 20080829
  8. FLUOROURACIL [Suspect]
     Indication: BREAST CANCER
     Dosage: UNK
     Dates: start: 20090505
  9. ZOLPIDEM TARTRATE [Concomitant]
     Indication: SLEEP DISORDER
     Dosage: UNK
     Dates: start: 20090313
  10. FENTANYL [Concomitant]
     Indication: MUSCULOSKELETAL PAIN
     Dosage: UNK
     Dates: start: 20090429
  11. DOXORUBICIN HCL [Suspect]
     Indication: BREAST CANCER
     Dosage: UNK
     Dates: start: 20090526
  12. TRAMADOL HCL [Concomitant]
     Indication: PAIN
     Dosage: UNK
     Dates: start: 20080718
  13. CYCLOPHOSPHAMIDE [Suspect]
     Indication: BREAST CANCER
     Dosage: UNK
     Dates: start: 20090505
  14. MOVIPREP [Concomitant]
     Indication: CONSTIPATION
     Dosage: UNK
     Dates: start: 20090716, end: 20090716

REACTIONS (1)
  - URINARY TRACT INFECTION [None]
